FAERS Safety Report 12860021 (Version 2)
Quarter: 2016Q4

REPORT INFORMATION
  Report Type: Spontaneous
  Country: CN (occurrence: CN)
  Receive Date: 20161019
  Receipt Date: 20161109
  Transmission Date: 20170207
  Serious: Yes (Hospitalization)
  Sender: FDA-Public Use
  Company Number: CN-GLAXOSMITHKLINE-CN2016GSK140174

PATIENT
  Age: 59 Year
  Sex: Male
  Weight: 53 kg

DRUGS (9)
  1. DOMPERIDONE TABLET [Concomitant]
     Indication: GASTRIC DILATATION
     Dosage: 1 DF, TID
     Route: 048
  2. XIAO KE CHUAN CAPSULE [Concomitant]
     Indication: ASTHMA
     Dosage: 2 DF, TID
     Route: 048
  3. SERETIDE [Suspect]
     Active Substance: FLUTICASONE PROPIONATE\SALMETEROL XINAFOATE
     Indication: ASTHMA
     Dosage: UNK
     Route: 055
     Dates: start: 20160923
  4. SERETIDE [Suspect]
     Active Substance: FLUTICASONE PROPIONATE\SALMETEROL XINAFOATE
     Indication: BRONCHITIS
  5. XIAO KE CHUAN CAPSULE [Concomitant]
     Indication: BRONCHITIS
  6. SERETIDE [Suspect]
     Active Substance: FLUTICASONE PROPIONATE\SALMETEROL XINAFOATE
     Indication: EMPHYSEMA
  7. DIMETHICONE. [Concomitant]
     Active Substance: DIMETHICONE
     Indication: GASTRIC DILATATION
     Dosage: 4 DF, TID
     Route: 048
  8. SUCRALFATE CHEWABLE TABLET [Concomitant]
     Indication: GASTRIC ULCER
     Dosage: 4 DF, TID
     Route: 048
  9. XIAO KE CHUAN CAPSULE [Concomitant]
     Indication: EMPHYSEMA

REACTIONS (7)
  - Asthma [Recovered/Resolved]
  - Drug ineffective [Unknown]
  - Nasopharyngitis [Unknown]
  - Medication error [Unknown]
  - Wrong technique in product usage process [Unknown]
  - Intentional product misuse [Unknown]
  - Emphysema [Recovered/Resolved]

NARRATIVE: CASE EVENT DATE: 20160923
